FAERS Safety Report 19054127 (Version 1)
Quarter: 2021Q1

REPORT INFORMATION
  Report Type: Not Available
  Country: None (occurrence: None)
  Receive Date: 20210324
  Receipt Date: 20210324
  Transmission Date: 20210420
  Serious: No
  Sender: FDA-Public Use
  Company Number: US-AKORN-163919

PATIENT
  Sex: Female

DRUGS (1)
  1. AK?FLUOR [Suspect]
     Active Substance: FLUORESCEIN SODIUM

REACTIONS (10)
  - Headache [None]
  - Rhinorrhoea [None]
  - Sneezing [None]
  - Eye pruritus [None]
  - Injection site rash [None]
  - Injection site vesicles [None]
  - Malaise [None]
  - Chromaturia [None]
  - Hypersensitivity [None]
  - Pruritus [None]
